FAERS Safety Report 21758845 (Version 1)
Quarter: 2022Q4

REPORT INFORMATION
  Report Type: Other
  Country: US (occurrence: None)
  Receive Date: 20221221
  Receipt Date: 20221221
  Transmission Date: 20230113
  Serious: Yes (Hospitalization)
  Sender: FDA-Public Use
  Company Number: US-ROCHE-3243477

PATIENT
  Age: 63 Year
  Sex: Female
  Weight: 66.738 kg

DRUGS (13)
  1. OCREVUS [Suspect]
     Active Substance: OCRELIZUMAB
     Indication: Relapsing multiple sclerosis
     Dosage: UNKNOWN, 600 MG IN NS 500 ML IV OF 6 MONTHS, LAST DATE OF TREATMENT: /APR/2021, ANTICIPATED DATE OF
     Route: 042
     Dates: start: 20180926
  2. SODIUM CHLORIDE [Concomitant]
     Active Substance: SODIUM CHLORIDE
  3. METHYLPREDNISOLONE SODIUM SUCCINATE [Concomitant]
     Active Substance: METHYLPREDNISOLONE SODIUM SUCCINATE
  4. DIPHENHYDRAMINE [Concomitant]
     Active Substance: DIPHENHYDRAMINE
  5. ACETAMINOPHEN [Concomitant]
     Active Substance: ACETAMINOPHEN
  6. ZYRTEC [Concomitant]
     Active Substance: CETIRIZINE HYDROCHLORIDE
  7. VITAMIN D3 [Concomitant]
     Active Substance: CHOLECALCIFEROL
  8. SIMVASTATIN [Concomitant]
     Active Substance: SIMVASTATIN
  9. PROVIGIL [Concomitant]
     Active Substance: MODAFINIL
  10. IBUPROFEN [Concomitant]
     Active Substance: IBUPROFEN
  11. GABAPENTIN [Concomitant]
     Active Substance: GABAPENTIN
  12. BIOTIN [Concomitant]
     Active Substance: BIOTIN
  13. BACLOFEN [Concomitant]
     Active Substance: BACLOFEN

REACTIONS (4)
  - Encephalitis [Recovered/Resolved]
  - Meningitis [Recovered/Resolved]
  - COVID-19 [Recovered/Resolved]
  - Bedridden [Not Recovered/Not Resolved]
